FAERS Safety Report 18245881 (Version 3)
Quarter: 2021Q1

REPORT INFORMATION
  Report Type: Spontaneous
  Country: US (occurrence: US)
  Receive Date: 20200909
  Receipt Date: 20210311
  Transmission Date: 20210419
  Serious: Yes (Hospitalization, Other)
  Sender: FDA-Public Use
  Company Number: US-ASTRAZENECA-2020SF11770

PATIENT
  Age: 58 Year
  Sex: Male
  Weight: 46.3 kg

DRUGS (72)
  1. PREVACID 24 HR [Suspect]
     Active Substance: LANSOPRAZOLE
     Indication: GASTROOESOPHAGEAL REFLUX DISEASE
     Route: 065
     Dates: start: 200101, end: 201812
  2. PROTONIX [Suspect]
     Active Substance: PANTOPRAZOLE SODIUM
     Indication: GASTROOESOPHAGEAL REFLUX DISEASE
     Route: 065
     Dates: start: 200101, end: 201812
  3. PROTONIX [Suspect]
     Active Substance: PANTOPRAZOLE SODIUM
     Indication: GASTROOESOPHAGEAL REFLUX DISEASE
     Dosage: GENERIC
     Route: 048
     Dates: start: 20020531
  4. NOVOLOG [Concomitant]
     Active Substance: INSULIN ASPART
  5. BUPROPION HYDROCHLORIDE. [Concomitant]
     Active Substance: BUPROPION HYDROCHLORIDE
  6. METOPROLOL SUCCINATE. [Concomitant]
     Active Substance: METOPROLOL SUCCINATE
  7. LEVETIRACETAM. [Concomitant]
     Active Substance: LEVETIRACETAM
  8. CLONAZEPAM. [Concomitant]
     Active Substance: CLONAZEPAM
  9. SODIUM CHLORIDE. [Concomitant]
     Active Substance: SODIUM CHLORIDE
  10. FUROSEMIDE. [Concomitant]
     Active Substance: FUROSEMIDE
     Dates: start: 20141023
  11. RENVELA [Concomitant]
     Active Substance: SEVELAMER CARBONATE
  12. NITROGLYCERIN. [Concomitant]
     Active Substance: NITROGLYCERIN
  13. PRILOSEC [Suspect]
     Active Substance: OMEPRAZOLE MAGNESIUM
     Indication: GASTROOESOPHAGEAL REFLUX DISEASE
     Route: 048
     Dates: start: 200101, end: 201812
  14. PRILOSEC [Suspect]
     Active Substance: OMEPRAZOLE MAGNESIUM
     Indication: GASTROOESOPHAGEAL REFLUX DISEASE
     Route: 048
     Dates: start: 2001, end: 2018
  15. PREVACID [Suspect]
     Active Substance: LANSOPRAZOLE
     Indication: GASTROOESOPHAGEAL REFLUX DISEASE
     Route: 065
     Dates: start: 200101, end: 201812
  16. DICLOFENAC [Concomitant]
     Active Substance: DICLOFENAC
     Indication: PAIN
     Dates: start: 20161015, end: 20161208
  17. TRAMADOL. [Concomitant]
     Active Substance: TRAMADOL
  18. NIACIN. [Concomitant]
     Active Substance: NIACIN
  19. NEBIVOLOL. [Concomitant]
     Active Substance: NEBIVOLOL
  20. ATIVAN [Concomitant]
     Active Substance: LORAZEPAM
     Dates: start: 20141023
  21. HUMALOG [Concomitant]
     Active Substance: INSULIN LISPRO
  22. THIAMINE. [Concomitant]
     Active Substance: THIAMINE
     Dates: start: 20141023
  23. VERSED [Concomitant]
     Active Substance: MIDAZOLAM HYDROCHLORIDE
     Dates: start: 20141023
  24. VANCOMYCIN [Concomitant]
     Active Substance: VANCOMYCIN
  25. VALSARTAN. [Concomitant]
     Active Substance: VALSARTAN
     Indication: HYPERTENSION
     Dates: start: 20160930, end: 20161030
  26. CARVEDILOL. [Concomitant]
     Active Substance: CARVEDILOL
  27. ATORVASTATIN [Concomitant]
     Active Substance: ATORVASTATIN
  28. VITAMIN D [Concomitant]
     Active Substance: VITAMIN D NOS
  29. CLONIDINE HYDROCHLORIDE. [Concomitant]
     Active Substance: CLONIDINE HYDROCHLORIDE
  30. TYLENOL [Concomitant]
     Active Substance: ACETAMINOPHEN
     Dates: start: 20141022
  31. RESTORIL [Concomitant]
     Active Substance: TEMAZEPAM
     Dates: start: 20141022
  32. ALBUTEROL. [Concomitant]
     Active Substance: ALBUTEROL
     Dates: start: 20141023
  33. LISINOPRIL. [Concomitant]
     Active Substance: LISINOPRIL
     Indication: HYPERTENSION
     Dates: start: 20170203, end: 20170303
  34. SERTRALINE [Concomitant]
     Active Substance: SERTRALINE HYDROCHLORIDE
  35. OMEGA 3 [Concomitant]
     Active Substance: OMEGA-3 FATTY ACIDS
  36. AMIDATE [Concomitant]
     Active Substance: ETOMIDATE
     Dates: start: 20141023
  37. LOVENOX [Concomitant]
     Active Substance: ENOXAPARIN SODIUM
  38. LEVEMIR [Concomitant]
     Active Substance: INSULIN DETEMIR
  39. DEMEROL [Concomitant]
     Active Substance: MEPERIDINE HYDROCHLORIDE
  40. AMLODIPINE [Concomitant]
     Active Substance: AMLODIPINE BESYLATE
  41. LANTUS [Concomitant]
     Active Substance: INSULIN GLARGINE
  42. NICOTINE. [Concomitant]
     Active Substance: NICOTINE
  43. VALPROIC ACID. [Concomitant]
     Active Substance: VALPROIC ACID
  44. ALBUMINAR [Concomitant]
     Active Substance: ALBUMIN HUMAN
  45. DIPRIVAN [Concomitant]
     Active Substance: PROPOFOL
     Dates: start: 20141023
  46. GOLYTELY [Concomitant]
     Active Substance: POLYETHYLENE GLYCOL 3350\POTASSIUM CHLORIDE\SODIUM BICARBONATE\SODIUM CHLORIDE\SODIUM SULFATE
     Dates: start: 20141023
  47. MAGNESIUM SULFATE. [Concomitant]
     Active Substance: MAGNESIUM SULFATE
  48. ZOLOFT [Concomitant]
     Active Substance: SERTRALINE HYDROCHLORIDE
  49. ZOSYN [Concomitant]
     Active Substance: PIPERACILLIN SODIUM\TAZOBACTAM SODIUM
  50. PREVACID [Suspect]
     Active Substance: LANSOPRAZOLE
     Indication: GASTROOESOPHAGEAL REFLUX DISEASE
     Route: 065
     Dates: start: 2001, end: 2018
  51. PROTONIX [Suspect]
     Active Substance: PANTOPRAZOLE SODIUM
     Indication: GASTROOESOPHAGEAL REFLUX DISEASE
     Route: 065
     Dates: start: 2001, end: 2018
  52. GABAPENTIN. [Concomitant]
     Active Substance: GABAPENTIN
  53. HYDRALAZINE HYDROCHLORIDE. [Concomitant]
     Active Substance: HYDRALAZINE HYDROCHLORIDE
  54. ZOFRAN [Concomitant]
     Active Substance: ONDANSETRON HYDROCHLORIDE
     Dates: start: 20141022
  55. ROBINUL [Concomitant]
     Active Substance: GLYCOPYRROLATE
  56. PREVACID [Suspect]
     Active Substance: LANSOPRAZOLE
     Indication: GASTROOESOPHAGEAL REFLUX DISEASE
     Dosage: GENERIC
     Route: 048
     Dates: start: 20160830
  57. PROTONIX [Suspect]
     Active Substance: PANTOPRAZOLE SODIUM
     Indication: GASTROOESOPHAGEAL REFLUX DISEASE
     Dosage: GENERIC
     Route: 065
     Dates: start: 2015, end: 2016
  58. CITALOPRAM HYDROBROMIDE. [Concomitant]
     Active Substance: CITALOPRAM HYDROBROMIDE
  59. LEVOFLOXACIN. [Concomitant]
     Active Substance: LEVOFLOXACIN
  60. MIDODRINE HYDROCHLORIDE. [Concomitant]
     Active Substance: MIDODRINE HYDROCHLORIDE
  61. FOLBEE [Concomitant]
     Active Substance: CYANOCOBALAMIN\FOLIC ACID\PYRIDOXINE HYDROCHLORIDE
  62. HYDRALAZINE [Concomitant]
     Active Substance: HYDRALAZINE HYDROCHLORIDE
     Dates: start: 20141023
  63. APRESOLINE HYDROCHLORIDE [Concomitant]
     Active Substance: HYDRALAZINE HYDROCHLORIDE
  64. PREVACID 24 HR [Suspect]
     Active Substance: LANSOPRAZOLE
     Indication: GASTROOESOPHAGEAL REFLUX DISEASE
     Route: 065
     Dates: start: 2009, end: 2018
  65. PROTONIX [Suspect]
     Active Substance: PANTOPRAZOLE SODIUM
     Indication: GASTROOESOPHAGEAL REFLUX DISEASE
     Route: 048
     Dates: start: 20141024
  66. PROTONIX [Suspect]
     Active Substance: PANTOPRAZOLE SODIUM
     Indication: GASTROOESOPHAGEAL REFLUX DISEASE
     Route: 048
     Dates: start: 20160831
  67. CYCLOBENZAPRINE HYDROCHLORIDE. [Concomitant]
     Active Substance: CYCLOBENZAPRINE HYDROCHLORIDE
  68. DEXTROSE. [Concomitant]
     Active Substance: DEXTROSE
  69. LIBRIUM [Concomitant]
     Active Substance: CHLORDIAZEPOXIDE HYDROCHLORIDE
  70. FENTANYL. [Concomitant]
     Active Substance: FENTANYL
  71. HALDOL [Concomitant]
     Active Substance: HALOPERIDOL
  72. NAROPIN [Concomitant]
     Active Substance: ROPIVACAINE HYDROCHLORIDE

REACTIONS (8)
  - Chronic kidney disease [Not Recovered/Not Resolved]
  - End stage renal disease [Not Recovered/Not Resolved]
  - Metabolic acidosis [Unknown]
  - Renal tubular necrosis [Unknown]
  - Nephrogenic anaemia [Unknown]
  - Tubulointerstitial nephritis [Unknown]
  - Acute kidney injury [Not Recovered/Not Resolved]
  - Renal failure [Unknown]

NARRATIVE: CASE EVENT DATE: 2014
